FAERS Safety Report 14805773 (Version 5)
Quarter: 2019Q1

REPORT INFORMATION
  Report Type: Report from Study
  Country: DE (occurrence: DE)
  Receive Date: 20180425
  Receipt Date: 20190123
  Transmission Date: 20190417
  Serious: Yes (Other)
  Sender: FDA-Public Use
  Company Number: DE-PFIZER INC-2018162016

PATIENT
  Sex: Female

DRUGS (3)
  1. FENTANYL. [Suspect]
     Active Substance: FENTANYL
     Indication: CAESAREAN SECTION
     Dosage: 0.4 ML, SINGLE
     Route: 037
  2. AKRINOR [Concomitant]
     Active Substance: CAFEDRINE HYDROCHLORIDE\THEODRENALINE
     Indication: PROPHYLAXIS
     Dosage: 0.5 ML [CAFEDRINHYDROCHLORIDE 200 MG/2 ML AND THEODRENALINHYDROCHLORIDE 10 MG/2 ML]
     Route: 042
  3. BUPIVACAINE HYDROCHLORIDE. [Suspect]
     Active Substance: BUPIVACAINE HYDROCHLORIDE
     Indication: CAESAREAN SECTION
     Dosage: 2 ML, SINGLE
     Route: 037

REACTIONS (1)
  - Procedural hypotension [Unknown]
